FAERS Safety Report 9157137 (Version 3)
Quarter: 2014Q1

REPORT INFORMATION
  Report Type: Spontaneous
  Country: US (occurrence: US)
  Receive Date: 20130312
  Receipt Date: 20140206
  Transmission Date: 20141002
  Serious: Yes (Hospitalization)
  Sender: FDA-Public Use
  Company Number: US-B.I. PHARMACEUTICALS,INC./RIDGEFIELD-2013-BI-05885BP

PATIENT
  Age: 68 Year
  Sex: Female
  Weight: 78.02 kg

DRUGS (6)
  1. PRADAXA [Suspect]
     Indication: ATRIAL FIBRILLATION
     Dosage: 300 MG
     Dates: start: 201112, end: 20120308
  2. NORVASC [Concomitant]
     Dosage: 10 MG
  3. COREG [Concomitant]
     Dosage: 6.25 MG
  4. COZAAR [Concomitant]
     Dosage: 50 MG
  5. ZOCOR [Concomitant]
     Dosage: 20 MG
  6. DYAZIDE [Concomitant]

REACTIONS (3)
  - Gastrointestinal haemorrhage [Unknown]
  - Duodenal ulcer [Unknown]
  - Haemorrhagic anaemia [Unknown]
